FAERS Safety Report 19606536 (Version 2)
Quarter: 2022Q1

REPORT INFORMATION
  Report Type: Spontaneous
  Country: US (occurrence: US)
  Receive Date: 20210725
  Receipt Date: 20220324
  Transmission Date: 20220423
  Serious: No
  Sender: FDA-Public Use
  Company Number: US-NOVARTISTESTPH-NVSC2021US156613

PATIENT
  Sex: Female

DRUGS (2)
  1. VIVELLE-DOT [Suspect]
     Active Substance: ESTRADIOL
     Indication: Product used for unknown indication
     Dosage: 0.5 MG, TID
     Route: 062
     Dates: start: 20210614
  2. LEVOTHYROXINE [Concomitant]
     Active Substance: LEVOTHYROXINE
     Indication: Product used for unknown indication
     Dosage: 136 MG, QD
     Route: 065

REACTIONS (4)
  - Feeling abnormal [Unknown]
  - Device physical property issue [Unknown]
  - Product adhesion issue [Unknown]
  - Product dose omission issue [Unknown]
